FAERS Safety Report 8325465-4 (Version None)
Quarter: 2012Q2

REPORT INFORMATION
  Report Type: 
  Country: None (occurrence: None)
  Receive Date: 20120501
  Receipt Date: 20120425
  Transmission Date: 20120825
  Serious: Yes (Other)
  Sender: FDA-Public Use
  Company Number: PHFR2011GB05911

PATIENT
  Sex: Male

DRUGS (6)
  1. AMLODIPINE [Concomitant]
     Dosage: 5 MG, UNK
     Route: 048
  2. RAMIPRIL [Concomitant]
     Dosage: 1.25 MG, UNK
     Route: 048
  3. CLOZARIL [Suspect]
     Indication: SCHIZOPHRENIA
     Route: 048
     Dates: start: 20110622
  4. CLOZARIL [Suspect]
     Dosage: 300 MG, UNK
     Route: 048
  5. KWELLS [Concomitant]
     Dosage: 600 UG, UNK
     Route: 048
  6. BISOPROLOL FUMARATE [Concomitant]
     Dosage: 1.25 MG, UNK
     Route: 048

REACTIONS (6)
  - NAUSEA [None]
  - CHOLECYSTITIS [None]
  - GASTRIC ULCER [None]
  - WEIGHT DECREASED [None]
  - VOMITING [None]
  - GASTRIC DISORDER [None]
